FAERS Safety Report 7430377-4 (Version None)
Quarter: 2011Q2

REPORT INFORMATION
  Report Type: 
  Country: None (occurrence: None)
  Receive Date: 20110421
  Receipt Date: 20100907
  Transmission Date: 20111010
  Serious: No
  Sender: FDA-Public Use
  Company Number: US-ASTRAZENECA-2010SE41968

PATIENT
  Age: 65 Year
  Sex: Female

DRUGS (4)
  1. TRAMADOL HCL [Suspect]
     Route: 065
  2. TOPROL-XL [Suspect]
     Route: 048
  3. VALIUM [Suspect]
     Route: 065
  4. EXFORGE [Suspect]
     Route: 065

REACTIONS (6)
  - LIMB INJURY [None]
  - FALL [None]
  - SLUGGISHNESS [None]
  - MUSCLE SPASMS [None]
  - HEART RATE INCREASED [None]
  - BACK INJURY [None]
